FAERS Safety Report 10168287 (Version 2)
Quarter: 2014Q2

REPORT INFORMATION
  Report Type: Spontaneous
  Country: US (occurrence: US)
  Receive Date: 20140512
  Receipt Date: 20140617
  Transmission Date: 20141212
  Serious: No
  Sender: FDA-Public Use
  Company Number: US-GILEAD-2014-0102040

PATIENT
  Sex: Female
  Weight: 74.83 kg

DRUGS (3)
  1. LETAIRIS [Suspect]
     Indication: PRODUCT USED FOR UNKNOWN INDICATION
     Dosage: 5 MG, QD
     Route: 065
     Dates: start: 20140212
  2. TYVASO [Suspect]
     Indication: COR PULMONALE CHRONIC
     Dosage: UNK
     Route: 065
     Dates: start: 20130125
  3. ADCIRCA [Concomitant]

REACTIONS (3)
  - Malaise [Unknown]
  - Rash [Unknown]
  - Dyspnoea [Unknown]
